FAERS Safety Report 6536812-8 (Version None)
Quarter: 2010Q1

REPORT INFORMATION
  Report Type: 
  Country: None (occurrence: None)
  Receive Date: 20100113
  Receipt Date: 20100106
  Transmission Date: 20100710
  Serious: Yes (Other)
  Sender: FDA-Public Use
  Company Number: US-AMGEN-QUU361247

PATIENT
  Sex: Female

DRUGS (3)
  1. ENBREL [Suspect]
     Indication: RHEUMATOID ARTHRITIS
     Route: 058
     Dates: start: 20041207
  2. LODINE [Concomitant]
     Dates: start: 20060101
  3. PREDNISONE [Concomitant]
     Dates: start: 20090916

REACTIONS (1)
  - BENIGN NEOPLASM OF THYROID GLAND [None]
